FAERS Safety Report 10559894 (Version 2)
Quarter: 2014Q4

REPORT INFORMATION
  Report Type: Spontaneous
  Country: JP (occurrence: None)
  Receive Date: 20141030
  Receipt Date: 20141212
  Transmission Date: 20150529
  Serious: Yes (Other)
  Sender: FDA-Public Use
  Company Number: JP-RRD-14-00117

PATIENT
  Age: 35 Year
  Sex: Female

DRUGS (3)
  1. ETOPOSIDE (ETOPOSIDE) [Suspect]
     Active Substance: ETOPOSIDE
     Indication: CHORIOCARCINOMA
  2. COSMEGEN [Suspect]
     Active Substance: DACTINOMYCIN
     Indication: CHORIOCARCINOMA
  3. METHOTREXATE (METHOTREXATE) [Suspect]
     Active Substance: METHOTREXATE
     Indication: CHORIOCARCINOMA

REACTIONS (12)
  - Decreased appetite [None]
  - Gastrointestinal disorder [None]
  - Drug resistance [None]
  - Granulocytopenia [None]
  - Stomatitis [None]
  - Bone marrow failure [None]
  - Thrombocytopenia [None]
  - Febrile neutropenia [None]
  - Human chorionic gonadotropin increased [None]
  - Anaemia [None]
  - Metastases to lung [None]
  - Recurrent cancer [None]
